FAERS Safety Report 5034670-4 (Version None)
Quarter: 2006Q2

REPORT INFORMATION
  Report Type: 
  Country: None (occurrence: None)
  Receive Date: 20060621
  Receipt Date: 20060608
  Transmission Date: 20061013
  Serious: Yes (Other)
  Sender: FDA-Public Use
  Company Number: B0427437A

PATIENT
  Sex: Female

DRUGS (4)
  1. MYLERAN [Suspect]
     Indication: STEM CELL TRANSPLANT
     Dosage: 3.3 MG/KG/INTRAVENOUS
     Route: 042
  2. FLUDARABINE PHOSPHATE [Suspect]
     Indication: STEM CELL TRANSPLANT
     Dosage: 30 MG/M2/ PER DAY/ INTRAVENOUS
     Route: 042
  3. CANCER CHEMOTHERAPY [Concomitant]
  4. CYCLOSPORINE [Concomitant]

REACTIONS (5)
  - APLASIA [None]
  - GRAFT VERSUS HOST DISEASE IN SKIN [None]
  - NEUTROPHIL COUNT ABNORMAL [None]
  - PLATELET COUNT DECREASED [None]
  - SEPSIS [None]
